FAERS Safety Report 9704971 (Version 2)
Quarter: 2013Q4

REPORT INFORMATION
  Report Type: Spontaneous
  Country: SE (occurrence: SE)
  Receive Date: 20131122
  Receipt Date: 20131122
  Transmission Date: 20140711
  Serious: Yes (Other)
  Sender: FDA-Public Use
  Company Number: SE-ASTELLAS-2013EU008648

PATIENT
  Age: 33 Year
  Sex: Female

DRUGS (1)
  1. PROTOPIC [Suspect]
     Indication: VITILIGO
     Dosage: UNK
     Route: 065
     Dates: start: 20130923, end: 20131011

REACTIONS (7)
  - Off label use [Unknown]
  - Eye irritation [Recovering/Resolving]
  - Asthenopia [Recovering/Resolving]
  - Alcohol intolerance [Not Recovered/Not Resolved]
  - Rash [Not Recovered/Not Resolved]
  - Burning sensation [Not Recovered/Not Resolved]
  - Discomfort [Not Recovered/Not Resolved]
